FAERS Safety Report 7602687-9 (Version None)
Quarter: 2011Q3

REPORT INFORMATION
  Report Type: 
  Country: None (occurrence: None)
  Receive Date: 20110701
  Receipt Date: 20091218
  Transmission Date: 20111222
  Serious: Yes (Other)
  Sender: FDA-Public Use
  Company Number: SIM_00029_2011

PATIENT
  Sex: Male

DRUGS (1)
  1. STYE EYE RELIEF (HOMEOPATHIC) [Suspect]
     Indication: HORDEOLUM
     Dosage: (5 GTT, 3 DROPS AT 6:30PM AND THEN 2 DROPS AT 10:30PM OPHTHALMIC)
     Route: 047
     Dates: start: 20101216, end: 20101216

REACTIONS (2)
  - VISION BLURRED [None]
  - DRUG HYPERSENSITIVITY [None]
